FAERS Safety Report 24183714 (Version 1)
Quarter: 2024Q3

REPORT INFORMATION
  Report Type: Spontaneous
  Country: US (occurrence: None)
  Receive Date: 20240806
  Receipt Date: 20240806
  Transmission Date: 20241017
  Serious: Yes (Hospitalization)
  Sender: Public
  Company Number: None

PATIENT
  Age: 85 Year
  Sex: Male

DRUGS (11)
  1. POMALYST [Suspect]
     Active Substance: POMALIDOMIDE
     Indication: Plasma cell myeloma
     Dosage: OTHER FREQUENCY : DAILY FOR 21 DAYS AD 7 DAYS OFF;?
     Route: 048
     Dates: start: 20240626
  2. ACETAMINOPHE [Concomitant]
  3. ALBUTEROL [Concomitant]
  4. ALPHA LIPOIC [Concomitant]
  5. ASPIRIN [Concomitant]
     Active Substance: ASPIRIN
  6. DEXAMETHASONE [Concomitant]
  7. IRON [Concomitant]
  8. IRON SLOW [Concomitant]
  9. NITROGLYCERN [Concomitant]
  10. PANTOPRAZOLE [Concomitant]
  11. SARCLISA SOL [Concomitant]

REACTIONS (2)
  - Renal failure [None]
  - Intentional dose omission [None]

NARRATIVE: CASE EVENT DATE: 20240719
